FAERS Safety Report 8282735-6 (Version None)
Quarter: 2012Q2

REPORT INFORMATION
  Report Type: 
  Country: None (occurrence: None)
  Receive Date: 20120413
  Receipt Date: 20120411
  Transmission Date: 20120825
  Serious: Yes (Hospitalization)
  Sender: FDA-Public Use
  Company Number: CA-ABBOTT-12P-028-0921722-00

PATIENT
  Sex: Female
  Weight: 140 kg

DRUGS (1)
  1. HUMIRA [Suspect]
     Indication: PSORIATIC ARTHROPATHY
     Route: 058
     Dates: start: 20090621

REACTIONS (3)
  - CARDIAC FAILURE CONGESTIVE [None]
  - DEHYDRATION [None]
  - RENAL FAILURE [None]
